FAERS Safety Report 14558775 (Version 3)
Quarter: 2022Q1

REPORT INFORMATION
  Report Type: Report from Study
  Country: FR (occurrence: FR)
  Receive Date: 20180221
  Receipt Date: 20220323
  Transmission Date: 20220423
  Serious: Yes (Life-Threatening, Other)
  Sender: FDA-Public Use
  Company Number: FR-JNJFOC-20180228508

PATIENT
  Age: 54 Year
  Sex: Male
  Weight: 85 kg

DRUGS (4)
  1. TRABECTEDIN [Suspect]
     Active Substance: TRABECTEDIN
     Indication: Leiomyosarcoma
     Dosage: CUMULATIVE DOSE BEFORE ONSET OF EVENT WAS 2.1 MG; CYCLE 1
     Route: 042
     Dates: start: 20171017, end: 20171017
  2. TRABECTEDIN [Suspect]
     Active Substance: TRABECTEDIN
     Dosage: DOSE REDUCED
     Route: 042
     Dates: start: 20171106
  3. DOXORUBICIN HYDROCHLORIDE [Suspect]
     Active Substance: DOXORUBICIN HYDROCHLORIDE
     Indication: Leiomyosarcoma
     Dosage: CUMULATIVE DOSE BEFORE EVENT ONSET OF 120 MG; CYCLE 1
     Route: 042
     Dates: start: 20171017, end: 20171017
  4. DOXORUBICIN HYDROCHLORIDE [Suspect]
     Active Substance: DOXORUBICIN HYDROCHLORIDE
     Dosage: DOSE REDUCED
     Route: 042
     Dates: start: 20171106

REACTIONS (1)
  - Pancytopenia [Recovered/Resolved]

NARRATIVE: CASE EVENT DATE: 20171024
